FAERS Safety Report 6473813-2 (Version None)
Quarter: 2009Q4

REPORT INFORMATION
  Report Type: 
  Country: None (occurrence: None)
  Receive Date: 20091130
  Receipt Date: 20091101
  Transmission Date: 20100525
  Serious: Yes (Hospitalization)
  Sender: FDA-Public Use
  Company Number: 2009-0326

PATIENT
  Age: 61 Year
  Sex: Female

DRUGS (4)
  1. SOMATULINE DEPOT [Suspect]
     Indication: FLUID REPLACEMENT
     Dosage: (90 MG,1 IN 1 M) SUBCUTANEOUS
     Route: 058
     Dates: start: 20090215
  2. INFLIXIMAB (INFLIXIMAB) [Concomitant]
  3. LEVOTHYROXINE SODIUM [Concomitant]
  4. VITAMIN B12 [Concomitant]

REACTIONS (9)
  - BLOOD ALBUMIN DECREASED [None]
  - CHEILITIS [None]
  - ECZEMA [None]
  - HYPOCALCAEMIA [None]
  - HYPOMAGNESAEMIA [None]
  - HYPOPARATHYROIDISM [None]
  - HYPOSIDERAEMIA [None]
  - MUSCLE SPASMS [None]
  - NORMOCHROMIC NORMOCYTIC ANAEMIA [None]
